FAERS Safety Report 4726470-7 (Version None)
Quarter: 2005Q3

REPORT INFORMATION
  Report Type: 
  Country: None (occurrence: None)
  Receive Date: 20050725
  Receipt Date: 20050509
  Transmission Date: 20060218
  Serious: No
  Sender: FDA-Public Use
  Company Number: USA050597587

PATIENT
  Age: 31 Year
  Sex: Male

DRUGS (5)
  1. STRATTERA [Suspect]
     Indication: ATTENTION DEFICIT/HYPERACTIVITY DISORDER
     Dosage: 40 MG DAY
     Dates: start: 20050201, end: 20050505
  2. METHADONE [Concomitant]
  3. KLONOPIN [Concomitant]
  4. TYLENOL [Concomitant]
  5. NYQUIL [Concomitant]

REACTIONS (1)
  - DRUG SCREEN POSITIVE [None]
